FAERS Safety Report 7867104-2 (Version None)
Quarter: 2011Q4

REPORT INFORMATION
  Report Type: 
  Country: None (occurrence: None)
  Receive Date: 20111028
  Receipt Date: 20111019
  Transmission Date: 20120403
  Serious: Yes (Other)
  Sender: FDA-Public Use
  Company Number: GB-BRISTOL-MYERS SQUIBB COMPANY-15951957

PATIENT
  Age: 73 Year
  Sex: Male
  Weight: 86 kg

DRUGS (6)
  1. CELECOXIB [Concomitant]
     Indication: ARTHRITIS
     Dosage: CONTINUING THERAPY.
     Route: 048
     Dates: start: 20050101
  2. ASPIRIN [Concomitant]
     Route: 048
     Dates: start: 20020101
  3. ALLOPURINOL [Concomitant]
     Route: 048
     Dates: start: 20020101
  4. HYDROXYUREA [Suspect]
     Indication: POLYCYTHAEMIA
     Dosage: 1DF=500MG/1G ALTERNATIVE DAYS.
     Route: 048
     Dates: start: 20020101
  5. PRILOSEC [Concomitant]
     Indication: GASTROOESOPHAGEAL REFLUX DISEASE
     Dosage: CONTINUING THERAPY.
     Route: 048
     Dates: start: 20060101
  6. AMLODIPINE [Concomitant]
     Indication: HYPERTENSION
     Dosage: CONTINUING THERAPY.
     Route: 048
     Dates: start: 20090101

REACTIONS (1)
  - POLYMYALGIA RHEUMATICA [None]
